FAERS Safety Report 4786946-3 (Version None)
Quarter: 2005Q3

REPORT INFORMATION
  Report Type: 
  Country: None (occurrence: None)
  Receive Date: 20050930
  Receipt Date: 20050126
  Transmission Date: 20060218
  Serious: Yes (Death)
  Sender: FDA-Public Use
  Company Number: 2005FR-00332

PATIENT
  Age: 24 Year
  Sex: Female

DRUGS (2)
  1. PARACETAMOL [Suspect]
     Indication: ACCIDENTAL OVERDOSE
     Dosage: 40 TABLETS ONCE ORAL
     Route: 048
  2. CODEINE [Suspect]
     Dosage: 40 TABLETS ONCE

REACTIONS (6)
  - ACCIDENTAL OVERDOSE [None]
  - CARDIAC ARREST [None]
  - ENCEPHALOPATHY [None]
  - HEPATIC FAILURE [None]
  - OLIGURIA [None]
  - PUPIL FIXED [None]
